FAERS Safety Report 19223602 (Version 1)
Quarter: 2021Q2

REPORT INFORMATION
  Report Type: Spontaneous
  Country: US (occurrence: US)
  Receive Date: 20210506
  Receipt Date: 20210506
  Transmission Date: 20210717
  Serious: Yes (Other)
  Sender: FDA-Public Use
  Company Number: US-PFIZER INC-2021496305

PATIENT

DRUGS (1)
  1. VERAPAMIL HCL [Suspect]
     Active Substance: VERAPAMIL HYDROCHLORIDE
     Dosage: UNK

REACTIONS (5)
  - Cardiac disorder [Unknown]
  - Coagulopathy [Unknown]
  - Immune system disorder [Unknown]
  - Seizure [Unknown]
  - Systemic lupus erythematosus [Unknown]
